FAERS Safety Report 5477435-1 (Version None)
Quarter: 2007Q4

REPORT INFORMATION
  Report Type: 
  Country: None (occurrence: None)
  Receive Date: 20071004
  Receipt Date: 20070924
  Transmission Date: 20080405
  Serious: Yes (Hospitalization)
  Sender: FDA-Public Use
  Company Number: ES-PFIZER INC-2007079561

PATIENT
  Age: 85 Year
  Sex: Male

DRUGS (2)
  1. XALATAN [Suspect]
     Indication: CATARACT
     Route: 047
  2. PILOCARPINE [Suspect]
     Indication: CATARACT
     Route: 047

REACTIONS (1)
  - BRADYCARDIA [None]
